FAERS Safety Report 15583180 (Version 1)
Quarter: 2018Q4

REPORT INFORMATION
  Report Type: Spontaneous
  Country: US (occurrence: US)
  Receive Date: 20181031
  Receipt Date: 20181031
  Transmission Date: 20190205
  Serious: No
  Sender: FDA-Public Use
  Company Number: None

PATIENT
  Age: 56 Year
  Sex: Female

DRUGS (1)
  1. MAVYRET [Suspect]
     Active Substance: GLECAPREVIR\PIBRENTASVIR
     Indication: CHRONIC HEPATITIS C
     Dates: start: 20181019

REACTIONS (7)
  - Nasopharyngitis [None]
  - Influenza [None]
  - Cough [None]
  - Upper-airway cough syndrome [None]
  - Sinus congestion [None]
  - Respiratory tract congestion [None]
  - Dyspnoea [None]

NARRATIVE: CASE EVENT DATE: 20181029
